FAERS Safety Report 12364571 (Version 1)
Quarter: 2016Q2

REPORT INFORMATION
  Report Type: Spontaneous
  Country: US (occurrence: None)
  Receive Date: 20160512
  Receipt Date: 20160512
  Transmission Date: 20160815
  Serious: Yes (Hospitalization)
  Sender: FDA-Public Use
  Company Number: None

PATIENT
  Age: 68 Year
  Sex: Male
  Weight: 70.5 kg

DRUGS (2)
  1. ERTAPENEM [Suspect]
     Active Substance: ERTAPENEM
     Indication: MULTIPLE-DRUG RESISTANCE
     Route: 042
     Dates: start: 20160318, end: 20160324
  2. ERTAPENEM [Suspect]
     Active Substance: ERTAPENEM
     Indication: URINARY TRACT INFECTION
     Route: 042
     Dates: start: 20160318, end: 20160324

REACTIONS (2)
  - Hepatic enzyme increased [None]
  - Jaundice [None]

NARRATIVE: CASE EVENT DATE: 20160323
